FAERS Safety Report 11948084 (Version 1)
Quarter: 2016Q1

REPORT INFORMATION
  Report Type: Spontaneous
  Country: US (occurrence: US)
  Receive Date: 20160125
  Receipt Date: 20160125
  Transmission Date: 20160526
  Serious: Yes (Other)
  Sender: FDA-Public Use
  Company Number: US-PFIZER INC-2016030713

PATIENT
  Age: 42 Year
  Sex: Female
  Weight: 58.5 kg

DRUGS (1)
  1. LYRICA [Suspect]
     Active Substance: PREGABALIN
     Indication: FIBROMYALGIA
     Dosage: 400 MG, DAILY

REACTIONS (5)
  - Tremor [Recovered/Resolved]
  - Weight fluctuation [Not Recovered/Not Resolved]
  - Seizure [Recovered/Resolved]
  - Dizziness [Recovered/Resolved]
  - Feeling abnormal [Not Recovered/Not Resolved]

NARRATIVE: CASE EVENT DATE: 201204
